FAERS Safety Report 6125764-0 (Version None)
Quarter: 2009Q1

REPORT INFORMATION
  Report Type: 
  Country: None (occurrence: None)
  Receive Date: 20090304
  Receipt Date: 20081211
  Transmission Date: 20090719
  Serious: Yes (Life-Threatening, Hospitalization)
  Sender: FDA-Public Use
  Company Number: 282332

PATIENT
  Age: 16 Year
  Sex: Male

DRUGS (1)
  1. NOVOSEVEN RT [Suspect]
     Dosage: 9.6 MG, PRN, INTRAVENOUS
     Route: 042
     Dates: end: 20080101

REACTIONS (1)
  - VENA CAVA THROMBOSIS [None]
